FAERS Safety Report 5685145-0 (Version None)
Quarter: 2008Q1

REPORT INFORMATION
  Report Type: 
  Country: None (occurrence: None)
  Receive Date: 20080328
  Receipt Date: 20080318
  Transmission Date: 20080703
  Serious: Yes (Other)
  Sender: FDA-Public Use
  Company Number: CA-PFIZER INC-2008023277

PATIENT
  Sex: Female

DRUGS (2)
  1. LYRICA [Suspect]
     Route: 048
  2. MORPHINE [Suspect]
     Dosage: DAILY DOSE:60MG-FREQ:FREQUENCY: DAILY

REACTIONS (1)
  - COMA [None]
